FAERS Safety Report 4699750-1 (Version None)
Quarter: 2005Q2

REPORT INFORMATION
  Report Type: 
  Country: None (occurrence: None)
  Receive Date: 20050623
  Receipt Date: 20050609
  Transmission Date: 20051028
  Serious: Yes (Other)
  Sender: FDA-Public Use
  Company Number: 2005086203

PATIENT
  Age: 77 Year
  Sex: Female
  Weight: 77.1115 kg

DRUGS (16)
  1. NICOTROL [Suspect]
     Indication: SMOKING CESSATION THERAPY
     Dosage: 1.5  CARTRIDGES QD INTERMITTENTLY,INHALATION
     Route: 055
     Dates: start: 20020101
  2. GLYBURIDE [Concomitant]
  3. TRAMADOL HYDROCHLORIDE 9TRAMADOL HYDROCHLORIDE) [Concomitant]
  4. HYDROCHLOROTHIAZIDE [Concomitant]
  5. LISINOPRIL [Concomitant]
  6. ATORVASTATIN CALCIUM [Concomitant]
  7. METFORMIN HCL [Concomitant]
  8. ALENDORNATE SODIM (ALENDRONATE SODIUM) [Concomitant]
  9. BECLOMETHASONE DIPROPIONATE [Concomitant]
  10. COMBIVENT [Concomitant]
  11. BRINZOLAMIDE (BRINZOLAMIDE) [Concomitant]
  12. LATANOPROST [Concomitant]
  13. CALCIUM (CALCIUM) [Concomitant]
  14. CENTRUM SILVER  (ASCORBIC ACID, CALCIUM, MINERALS NOS, RETINOLOL, TOCO [Concomitant]
  15. VITAMIN SUPPLEMENTATION [Concomitant]
  16. ACETAMINOPHEN [Concomitant]

REACTIONS (1)
  - NEOPLASM MALIGNANT [None]
